FAERS Safety Report 8927131 (Version 1)
Quarter: 2012Q4

REPORT INFORMATION
  Report Type: Report from Study
  Country: ES (occurrence: ES)
  Receive Date: 20121127
  Receipt Date: 20121127
  Transmission Date: 20130627
  Serious: Yes (Hospitalization, Other)
  Sender: FDA-Public Use
  Company Number: ES-ROCHE-1157018

PATIENT
  Age: 51 Year
  Sex: Female

DRUGS (6)
  1. VALGANCICLOVIR [Suspect]
     Indication: OPPORTUNISTIC INFECTION PROPHYLAXIS
     Route: 048
     Dates: start: 20120613, end: 20120806
  2. SEPTRIN FORTE [Suspect]
     Indication: OPPORTUNISTIC INFECTION PROPHYLAXIS
     Route: 048
     Dates: start: 20120613, end: 20120806
  3. PREZISTA [Suspect]
     Indication: HIV INFECTION
     Route: 048
     Dates: start: 20120725, end: 20120804
  4. NORVIR [Suspect]
     Indication: HIV INFECTION
     Route: 048
     Dates: start: 20120725, end: 20120804
  5. INTELENCE [Suspect]
     Indication: HIV INFECTION
     Route: 048
     Dates: start: 20120725, end: 20120804
  6. CELSENTRI [Suspect]
     Indication: HIV INFECTION
     Route: 048
     Dates: start: 20120725, end: 20120804

REACTIONS (2)
  - Hepatitis cholestatic [Recovering/Resolving]
  - Oesophageal candidiasis [Unknown]
